FAERS Safety Report 8391350 (Version 9)
Quarter: 2013Q2

REPORT INFORMATION
  Report Type: Report from Study
  Country: JP (occurrence: JP)
  Receive Date: 20120206
  Receipt Date: 20130517
  Transmission Date: 20140414
  Serious: Yes (Hospitalization)
  Sender: FDA-Public Use
  Company Number: JP-UCBSA-050540

PATIENT
  Age: 57 Year
  Sex: Female
  Weight: 55.8 kg

DRUGS (2)
  1. CERTOLIZUMAB PEGOL [Suspect]
     Indication: RHEUMATOID ARTHRITIS
     Route: 058
     Dates: start: 20090728, end: 20130402
  2. CERTOLIZUMAB PEGOL [Suspect]
     Indication: RHEUMATOID ARTHRITIS
     Dosage: RA0006: 400 MG/2 WEEKS -LOADING DOSE; 200 MG/2 WEEKS
     Route: 058
     Dates: start: 20090113, end: 200907

REACTIONS (1)
  - Computerised tomogram thorax abnormal [Recovered/Resolved]
